FAERS Safety Report 9426905 (Version 2)
Quarter: 2013Q3

REPORT INFORMATION
  Report Type: Spontaneous
  Country: US (occurrence: US)
  Receive Date: 20130730
  Receipt Date: 20130820
  Transmission Date: 20140515
  Serious: Yes (Death, Other)
  Sender: FDA-Public Use
  Company Number: US-ASTELLAS-2013US007876

PATIENT
  Age: 57 Year
  Sex: Male

DRUGS (2)
  1. XTANDI [Suspect]
     Indication: PROSTATE CANCER
     Dosage: 160 MG, UID/QD
     Route: 048
     Dates: start: 20130118, end: 20130502
  2. LUPRON [Concomitant]
     Indication: PROSTATE CANCER METASTATIC
     Dosage: 11.25 MG, OTHER
     Route: 065
     Dates: end: 20130502

REACTIONS (15)
  - Gout [Unknown]
  - Confusional state [Not Recovered/Not Resolved]
  - Decreased appetite [Not Recovered/Not Resolved]
  - Constipation [Unknown]
  - Nausea [Unknown]
  - Vomiting [Unknown]
  - Pruritus [Unknown]
  - Neutrophil morphology abnormal [Unknown]
  - Pain [Unknown]
  - Local swelling [Not Recovered/Not Resolved]
  - Malignant neoplasm progression [Fatal]
  - Anaemia [Unknown]
  - Weight decreased [Not Recovered/Not Resolved]
  - Cachexia [Unknown]
  - Asthenia [Not Recovered/Not Resolved]
